FAERS Safety Report 9728470 (Version 1)
Quarter: 2013Q4

REPORT INFORMATION
  Report Type: Spontaneous
  Country: US (occurrence: US)
  Receive Date: 20131204
  Receipt Date: 20131204
  Transmission Date: 20140711
  Serious: Yes (Other)
  Sender: FDA-Public Use
  Company Number: US-ABBVIE-13P-163-1174244-00

PATIENT
  Sex: Male

DRUGS (2)
  1. HUMIRA [Suspect]
     Indication: PSORIASIS
     Dates: start: 2013, end: 2013
  2. HUMIRA [Suspect]
     Indication: ARTHRALGIA

REACTIONS (4)
  - Renal failure [Unknown]
  - Erythrodermic psoriasis [Unknown]
  - Sepsis [Unknown]
  - Dehydration [Unknown]
